FAERS Safety Report 11538643 (Version 1)
Quarter: 2015Q3

REPORT INFORMATION
  Report Type: Spontaneous
  Country: US (occurrence: None)
  Receive Date: 20150922
  Receipt Date: 20150922
  Transmission Date: 20151125
  Serious: Yes (Other)
  Sender: FDA-Public Use
  Company Number: None

PATIENT
  Age: 79 Year
  Sex: Female
  Weight: 89.81 kg

DRUGS (8)
  1. OSTEO BI-FLEX [Concomitant]
     Active Substance: CHONDROITIN SULFATE A\GLUCOSAMINE
  2. CENTRUM [Concomitant]
     Active Substance: VITAMINS
  3. LORATADINE. [Concomitant]
     Active Substance: LORATADINE
  4. ATENOLOL. [Concomitant]
     Active Substance: ATENOLOL
  5. XARELTO [Suspect]
     Active Substance: RIVAROXABAN
     Indication: ATRIAL FIBRILLATION
     Dosage: 20 MG 1 PILL ONCE DAILY MOUTH
     Route: 048
     Dates: start: 20150515, end: 20150905
  6. GEMFRIBOZIL [Concomitant]
  7. KLOR-CON [Concomitant]
     Active Substance: POTASSIUM CHLORIDE
  8. ELIQUIS [Concomitant]
     Active Substance: APIXABAN

REACTIONS (2)
  - Bone pain [None]
  - Product substitution issue [None]

NARRATIVE: CASE EVENT DATE: 20150701
